FAERS Safety Report 24589738 (Version 2)
Quarter: 2025Q2

REPORT INFORMATION
  Report Type: Report from Study
  Country: US (occurrence: US)
  Receive Date: 20241107
  Receipt Date: 20250626
  Transmission Date: 20250717
  Serious: No
  Sender: NOVARTIS
  Company Number: US-002147023-NVSC2024US214970

PATIENT
  Sex: Female
  Weight: 72.12 kg

DRUGS (1)
  1. KISQALI [Suspect]
     Active Substance: RIBOCICLIB SUCCINATE
     Indication: Product used for unknown indication
     Route: 048

REACTIONS (3)
  - Confusional state [Unknown]
  - Fatigue [Unknown]
  - Hypoacusis [Unknown]
